FAERS Safety Report 5842653-7 (Version None)
Quarter: 2008Q3

REPORT INFORMATION
  Report Type: 
  Country: None (occurrence: None)
  Receive Date: 20080812
  Receipt Date: 20080731
  Transmission Date: 20090109
  Serious: Yes (Hospitalization)
  Sender: FDA-Public Use
  Company Number: US-ELI_LILLY_AND_COMPANY-US200807000846

PATIENT
  Age: 70 Year
  Sex: Female
  Weight: 57.143 kg

DRUGS (10)
  1. FORTEO [Suspect]
     Indication: OSTEOPOROSIS
     Dosage: 20 UG, DAILY (1/D)
     Dates: start: 20060825, end: 20080624
  2. FORTEO [Suspect]
     Dates: start: 20080703
  3. FORTEO [Suspect]
     Dosage: UNK, UNK
  4. VESICARE [Concomitant]
  5. VERAPAMIL [Concomitant]
  6. EFFEXOR [Concomitant]
  7. GABAPENTIN [Concomitant]
  8. MIRALAX [Concomitant]
  9. FENTANYL [Concomitant]
     Route: 023
  10. ASPIRIN [Concomitant]
     Dosage: 81 MG, UNK

REACTIONS (3)
  - HAEMORRHOIDS [None]
  - RECTAL HAEMORRHAGE [None]
  - RECTAL PROLAPSE [None]
